FAERS Safety Report 10397237 (Version 3)
Quarter: 2018Q2

REPORT INFORMATION
  Report Type: Spontaneous
  Country: JP (occurrence: JP)
  Receive Date: 20140820
  Receipt Date: 20180531
  Transmission Date: 20180711
  Serious: Yes (Other)
  Sender: FDA-Public Use
  Company Number: PHHY2013JP161602

PATIENT
  Age: 25 Year
  Sex: Female

DRUGS (2)
  1. TASIGNA [Suspect]
     Active Substance: NILOTINIB
     Indication: CHRONIC MYELOID LEUKAEMIA
     Dosage: UNK
     Route: 048
  2. GLIVEC [Suspect]
     Active Substance: IMATINIB MESYLATE
     Indication: CHRONIC MYELOID LEUKAEMIA
     Dosage: UNK
     Route: 065

REACTIONS (13)
  - Skin depigmentation [Unknown]
  - Constipation [Unknown]
  - Headache [Unknown]
  - Rash [Unknown]
  - Hair colour changes [Unknown]
  - Depression [Unknown]
  - Muscle spasms [Unknown]
  - Fatigue [Unknown]
  - Nausea [Unknown]
  - Diarrhoea [Unknown]
  - Anaemia [Unknown]
  - Myalgia [Unknown]
  - Oedema [Unknown]
